FAERS Safety Report 16890885 (Version 1)
Quarter: 2019Q4

REPORT INFORMATION
  Report Type: Spontaneous
  Country: US (occurrence: US)
  Receive Date: 20191007
  Receipt Date: 20191007
  Transmission Date: 20200122
  Serious: Yes (Other)
  Sender: FDA-Public Use
  Company Number: US-PFIZER INC-2019428750

PATIENT
  Age: 10 Year
  Sex: Male
  Weight: 37.65 kg

DRUGS (2)
  1. ZARONTIN [Suspect]
     Active Substance: ETHOSUXIMIDE
     Indication: SEIZURE
  2. ZARONTIN [Suspect]
     Active Substance: ETHOSUXIMIDE
     Indication: PETIT MAL EPILEPSY
     Dosage: UNK, DAILY [TITRATED FROM 1 PILL AND THEN EXPAND TO 2. HE WAS STILL DOING THE 1 DAILY, BY MOUTH]
     Route: 048
     Dates: start: 201909, end: 201909

REACTIONS (3)
  - Product storage error [Recovered/Resolved]
  - Poor quality product administered [Recovered/Resolved]
  - Vomiting [Recovered/Resolved]

NARRATIVE: CASE EVENT DATE: 201909
